FAERS Safety Report 13686336 (Version 1)
Quarter: 2017Q2

REPORT INFORMATION
  Report Type: Spontaneous
  Country: US (occurrence: US)
  Receive Date: 20170623
  Receipt Date: 20170623
  Transmission Date: 20170830
  Serious: Yes (Other)
  Sender: FDA-Public Use
  Company Number: US-ROCHE-1020968

PATIENT
  Age: 52 Year
  Sex: Female

DRUGS (18)
  1. MYCOPHENOLATE MOFETIL. [Suspect]
     Active Substance: MYCOPHENOLATE MOFETIL
     Indication: SYSTEMIC LUPUS ERYTHEMATOSUS
     Dosage: ESCALATING DOSES
     Route: 065
  2. MYCOPHENOLATE MOFETIL. [Suspect]
     Active Substance: MYCOPHENOLATE MOFETIL
     Route: 065
  3. PREDNISONE. [Concomitant]
     Active Substance: PREDNISONE
     Route: 048
  4. PREDNISONE. [Concomitant]
     Active Substance: PREDNISONE
     Dosage: TAPERED
     Route: 065
  5. PREDNISONE. [Concomitant]
     Active Substance: PREDNISONE
     Dosage: INCREASED
     Route: 065
  6. PREDNISONE. [Concomitant]
     Active Substance: PREDNISONE
     Dosage: DECREASED
     Route: 065
  7. HYDROXYCHLOROQUINE [Concomitant]
     Active Substance: HYDROXYCHLOROQUINE
     Route: 065
  8. PANTOPRAZOLE [Concomitant]
     Active Substance: PANTOPRAZOLE
  9. HYDROCHLOROTHIAZIDE. [Concomitant]
     Active Substance: HYDROCHLOROTHIAZIDE
     Route: 065
  10. PREDNISONE. [Concomitant]
     Active Substance: PREDNISONE
     Dosage: TAPERED
     Route: 065
  11. ASPIRIN. [Concomitant]
     Active Substance: ASPIRIN
     Route: 065
  12. ENALAPRIL [Concomitant]
     Active Substance: ENALAPRIL
     Route: 065
  13. AZATHIOPRINE. [Concomitant]
     Active Substance: AZATHIOPRINE
     Route: 065
  14. VITAMIN D [Concomitant]
     Active Substance: CHOLECALCIFEROL
  15. PREDNISONE. [Concomitant]
     Active Substance: PREDNISONE
     Indication: SYSTEMIC LUPUS ERYTHEMATOSUS
     Dosage: RANGED FROM 4 TO 30 MG DAILY
     Route: 065
  16. CALCIUM [Concomitant]
     Active Substance: CALCIUM
  17. PREDNISONE. [Concomitant]
     Active Substance: PREDNISONE
     Route: 065
  18. ZOLEDRONIC ACID [Concomitant]
     Active Substance: ZOLEDRONIC ACID
     Dosage: YEARLY INFUSIONS X 2
     Route: 065

REACTIONS (1)
  - Gastrointestinal disorder [Unknown]
